FAERS Safety Report 19873868 (Version 1)
Quarter: 2021Q3

REPORT INFORMATION
  Report Type: Report from Study
  Country: CA (occurrence: CA)
  Receive Date: 20210923
  Receipt Date: 20210923
  Transmission Date: 20211014
  Serious: Yes (Other)
  Sender: FDA-Public Use
  Company Number: CA-PFIZER INC-202101224339

PATIENT
  Age: 73 Year
  Sex: Female

DRUGS (1)
  1. METHOTREXATE SODIUM. [Suspect]
     Active Substance: METHOTREXATE SODIUM
     Indication: PSORIATIC ARTHROPATHY
     Route: 058

REACTIONS (14)
  - Gait disturbance [Unknown]
  - Psoriatic arthropathy [Unknown]
  - Sinus disorder [Unknown]
  - Gastrooesophageal reflux disease [Unknown]
  - Lung disorder [Unknown]
  - Pain [Unknown]
  - Fluid retention [Unknown]
  - Loss of personal independence in daily activities [Unknown]
  - Bronchiectasis [Unknown]
  - Dyspnoea [Unknown]
  - Dysstasia [Unknown]
  - Oropharyngeal discomfort [Unknown]
  - Grip strength decreased [Unknown]
  - Illness [Unknown]
